FAERS Safety Report 5305042-X (Version None)
Quarter: 2007Q2

REPORT INFORMATION
  Report Type: 
  Country: None (occurrence: None)
  Receive Date: 20070423
  Receipt Date: 20070410
  Transmission Date: 20071010
  Serious: Yes (Hospitalization)
  Sender: FDA-Public Use
  Company Number: US-MERCK-0704USA01380

PATIENT
  Age: 24 Year
  Sex: Male
  Weight: 64 kg

DRUGS (1)
  1. MECTIZAN [Suspect]
     Route: 048
     Dates: start: 20070114

REACTIONS (4)
  - ABASIA [None]
  - ASTHENIA [None]
  - HEADACHE [None]
  - PYREXIA [None]
